FAERS Safety Report 7185054-4 (Version None)
Quarter: 2010Q4

REPORT INFORMATION
  Report Type: 
  Country: None (occurrence: None)
  Receive Date: 20101123
  Receipt Date: 20100823
  Transmission Date: 20110411
  Serious: No
  Sender: FDA-Public Use
  Company Number: 017671

PATIENT
  Sex: Female
  Weight: 119.8 kg

DRUGS (6)
  1. CIMZIA [Suspect]
     Indication: RHEUMATOID ARTHRITIS
     Dosage: (400 MG 1X/2 WEEKS SUBCUTANEOUS)
     Route: 058
     Dates: start: 20100724, end: 20100808
  2. PREDNISONE [Concomitant]
  3. METHOTREXATE [Concomitant]
  4. EFFEXOR [Concomitant]
  5. PRILOSEC [Concomitant]
  6. LYRICA [Concomitant]

REACTIONS (4)
  - MUSCULAR WEAKNESS [None]
  - MUSCULOSKELETAL STIFFNESS [None]
  - MYALGIA [None]
  - WEIGHT INCREASED [None]
